FAERS Safety Report 4862305-X (Version None)
Quarter: 2005Q4

REPORT INFORMATION
  Report Type: 
  Country: None (occurrence: None)
  Receive Date: 20051221
  Receipt Date: 20050916
  Transmission Date: 20060501
  Serious: Yes (Disabling)
  Sender: FDA-Public Use
  Company Number: GB-AVENTIS-200513399EU

PATIENT
  Age: 71 Year
  Sex: Female
  Weight: 86 kg

DRUGS (6)
  1. CLEXANE [Suspect]
     Indication: ATRIAL FIBRILLATION
     Route: 058
  2. PLAVIX [Concomitant]
     Indication: ARTERIAL THROMBOSIS
     Dates: start: 20010101
  3. DYAZIDE [Concomitant]
     Indication: HYPERTENSION
     Dates: start: 19990101
  4. MONOCOR [Concomitant]
     Indication: HYPERTENSION
     Dates: start: 19990101
  5. METFORMIN [Concomitant]
     Indication: DIABETES MELLITUS NON-INSULIN-DEPENDENT
     Dates: start: 20030101
  6. ARYTHMOL [Concomitant]
     Indication: ATRIAL FIBRILLATION
     Dates: start: 20010101

REACTIONS (5)
  - ASTHENIA [None]
  - ATRIAL FIBRILLATION [None]
  - DISEASE RECURRENCE [None]
  - MALAISE [None]
  - MUSCULAR WEAKNESS [None]
